FAERS Safety Report 18792744 (Version 2)
Quarter: 2021Q1

REPORT INFORMATION
  Report Type: Report from Study
  Country: GB (occurrence: GB)
  Receive Date: 20210127
  Receipt Date: 20210128
  Transmission Date: 20210419
  Serious: Yes (Hospitalization)
  Sender: FDA-Public Use
  Company Number: GB-IPSEN BIOPHARMACEUTICALS, INC.-2020-23697

PATIENT
  Age: 25 Year
  Sex: Male

DRUGS (1)
  1. SOMATULINE AUTOGEL [Suspect]
     Active Substance: LANREOTIDE ACETATE
     Indication: ACROMEGALY
     Dosage: 120 MG/0.5 ML
     Route: 058

REACTIONS (7)
  - Back pain [Unknown]
  - Abdominal pain [Recovered/Resolved]
  - Malaise [Unknown]
  - Adverse event [Unknown]
  - Terminal state [Unknown]
  - Diarrhoea [Unknown]
  - Injection site discomfort [Recovered/Resolved]

NARRATIVE: CASE EVENT DATE: 2020
